FAERS Safety Report 6838404-X (Version None)
Quarter: 2010Q3

REPORT INFORMATION
  Report Type: 
  Country: None (occurrence: None)
  Receive Date: 20100713
  Receipt Date: 20070612
  Transmission Date: 20110219
  Serious: No
  Sender: FDA-Public Use
  Company Number: US-PFIZER INC-2007048407

PATIENT
  Sex: Female
  Weight: 72.6 kg

DRUGS (4)
  1. CHANTIX [Suspect]
     Indication: SMOKING CESSATION THERAPY
     Dates: start: 20070606
  2. LISINOPRIL [Concomitant]
  3. RANITIDINE [Concomitant]
  4. BUMETANIDE [Concomitant]
     Indication: SWELLING

REACTIONS (3)
  - FATIGUE [None]
  - NAUSEA [None]
  - SOMNOLENCE [None]
